FAERS Safety Report 8159808-1 (Version None)
Quarter: 2012Q1

REPORT INFORMATION
  Report Type: 
  Country: None (occurrence: None)
  Receive Date: 20120223
  Receipt Date: 20120215
  Transmission Date: 20120608
  Serious: Yes (Other)
  Sender: FDA-Public Use
  Company Number: US-BAYER-201018513NA

PATIENT
  Age: 28 Year
  Sex: Female
  Weight: 70.455 kg

DRUGS (27)
  1. YAZ [Suspect]
     Dosage: UNK
     Dates: start: 20080501, end: 20090601
  2. CEFUROXIME [Concomitant]
  3. CRESTOR [Concomitant]
  4. CRESTOR [Concomitant]
     Dates: start: 20090701
  5. VALERIAAN [Concomitant]
  6. YASMIN [Suspect]
     Indication: PREMENSTRUAL SYNDROME
  7. NEXIUM [Concomitant]
  8. DOCUSATE SODIUM [Concomitant]
  9. LUNESTA [Concomitant]
  10. BIOTIN [Concomitant]
  11. FLAXSEED OIL [Concomitant]
  12. FIORICET [Concomitant]
  13. MULTI-VITAMIN [Concomitant]
  14. FUROSEMIDE [Concomitant]
  15. FIORICET [Concomitant]
  16. COLACE [Concomitant]
  17. PROZAC [Concomitant]
  18. IBUPROFEN [Concomitant]
  19. FLAXSEED OIL [Concomitant]
  20. WARFARIN SODIUM [Concomitant]
     Dosage: 3.0
  21. YASMIN [Suspect]
     Indication: MENSTRUAL CYCLE MANAGEMENT
     Dosage: AS USED DOSE: UNK
     Route: 048
     Dates: start: 20080501
  22. PAROXETINE [Concomitant]
  23. BIOTIN [Concomitant]
  24. SARAFEM [Concomitant]
  25. PAXIL [Concomitant]
  26. CEFTIN [Concomitant]
  27. MULTI-VITAMIN [Concomitant]

REACTIONS (11)
  - BACK PAIN [None]
  - SCIATICA [None]
  - OEDEMA PERIPHERAL [None]
  - JOINT SWELLING [None]
  - SPIDER VEIN [None]
  - PAIN IN EXTREMITY [None]
  - ERYTHEMA [None]
  - HYPOAESTHESIA [None]
  - VASODILATATION [None]
  - DEEP VEIN THROMBOSIS [None]
  - ILIAC ARTERY EMBOLISM [None]
